FAERS Safety Report 5885491-1 (Version None)
Quarter: 2008Q3

REPORT INFORMATION
  Report Type: 
  Country: None (occurrence: None)
  Receive Date: 20080916
  Receipt Date: 20080910
  Transmission Date: 20090109
  Serious: Yes (Hospitalization)
  Sender: FDA-Public Use
  Company Number: FR-BRISTOL-MYERS SQUIBB COMPANY-14258081

PATIENT

DRUGS (4)
  1. CETUXIMAB [Suspect]
     Indication: COLON CANCER
     Dosage: RECENT INFUSION TAKEN ON 18JUN08.
     Route: 042
     Dates: start: 20080116
  2. OXALIPLATIN [Suspect]
     Indication: COLON CANCER
     Dosage: RECENT INFUSION TAKEN ON 18JUN08.
     Route: 042
     Dates: start: 20080116
  3. FLUOROURACIL [Suspect]
     Indication: COLON CANCER
     Route: 042
     Dates: start: 20080116
  4. LEUCOVORIN CALCIUM [Suspect]
     Indication: COLON CANCER
     Dosage: RECENT INFUSION TAKEN ON 18JUN08.
     Route: 042
     Dates: start: 20080116

REACTIONS (3)
  - HAEMATURIA [None]
  - PYREXIA [None]
  - THROMBOCYTOPENIA [None]
